FAERS Safety Report 19443555 (Version 6)
Quarter: 2021Q3

REPORT INFORMATION
  Report Type: Report from Study
  Country: US (occurrence: US)
  Receive Date: 20210621
  Receipt Date: 20210920
  Transmission Date: 20211014
  Serious: Yes (Hospitalization, Other)
  Sender: FDA-Public Use
  Company Number: NVSC2021US129490

PATIENT
  Age: 50 Year
  Sex: Male

DRUGS (1)
  1. ENTRESTO [Suspect]
     Active Substance: SACUBITRIL\VALSARTAN
     Indication: PRODUCT USED FOR UNKNOWN INDICATION
     Dosage: 100 MG, BID (49/ 51 MG)
     Route: 048
     Dates: start: 202102

REACTIONS (11)
  - Weight decreased [Unknown]
  - Sneezing [Unknown]
  - Nasal congestion [Unknown]
  - Brain neoplasm malignant [Unknown]
  - Asthenia [Recovering/Resolving]
  - Arthralgia [Unknown]
  - Blood pressure decreased [Recovering/Resolving]
  - COVID-19 [Recovering/Resolving]
  - Hypersensitivity [Unknown]
  - Back pain [Unknown]
  - Eye disorder [Recovering/Resolving]

NARRATIVE: CASE EVENT DATE: 20210822
